FAERS Safety Report 6738938-2 (Version None)
Quarter: 2010Q2

REPORT INFORMATION
  Report Type: 
  Country: None (occurrence: None)
  Receive Date: 20100521
  Receipt Date: 20100513
  Transmission Date: 20101027
  Serious: Yes (Disabling)
  Sender: FDA-Public Use
  Company Number: 1022556-2010-00031

PATIENT
  Sex: Male

DRUGS (1)
  1. ICY HOT PATCH - GENERIC, 5% MENTHOL [Suspect]
     Indication: ANALGESIC THERAPY
     Dosage: SINGLE DOSE TOPICAL
     Route: 061

REACTIONS (6)
  - APPLICATION SITE SCAR [None]
  - MUSCULOSKELETAL DISCOMFORT [None]
  - PAIN [None]
  - PRODUCT ADHESION ISSUE [None]
  - SKIN LACERATION [None]
  - WOUND [None]
